FAERS Safety Report 23960643 (Version 1)
Quarter: 2024Q2

REPORT INFORMATION
  Report Type: Spontaneous
  Country: US (occurrence: US)
  Receive Date: 20240611
  Receipt Date: 20240611
  Transmission Date: 20240716
  Serious: No
  Sender: FDA-Public Use
  Company Number: US-009507513-2405USA004694

PATIENT
  Age: 59 Year
  Sex: Male

DRUGS (3)
  1. NOXAFIL [Suspect]
     Active Substance: POSACONAZOLE
     Indication: Fusarium infection
     Dosage: UNK
     Route: 048
  2. TERBINAFINE [Concomitant]
     Active Substance: TERBINAFINE
     Indication: Fusarium infection
     Dosage: 250 MILLIGRAM, Q12H
  3. AMFOTERICINA B LIPOSOMAL [Concomitant]
     Indication: Fusarium infection
     Dosage: UNK

REACTIONS (1)
  - Product use in unapproved indication [Unknown]
